FAERS Safety Report 4420789-5 (Version None)
Quarter: 2004Q3

REPORT INFORMATION
  Report Type: 
  Country: None (occurrence: None)
  Receive Date: 20040809
  Receipt Date: 20040528
  Transmission Date: 20050211
  Serious: No
  Sender: FDA-Public Use
  Company Number: US-GLAXOSMITHKLINE-A0512646A

PATIENT
  Age: 22 Year
  Sex: Female

DRUGS (2)
  1. PAXIL [Suspect]
     Indication: DRUG USE FOR UNKNOWN INDICATION
     Dates: end: 20040401
  2. ANTIDEPRESSANT [Concomitant]

REACTIONS (1)
  - WEIGHT LOSS POOR [None]
